FAERS Safety Report 7214337-4 (Version None)
Quarter: 2011Q1

REPORT INFORMATION
  Report Type: 
  Country: None (occurrence: None)
  Receive Date: 20110107
  Receipt Date: 20110104
  Transmission Date: 20110831
  Serious: Yes (Death, Hospitalization)
  Sender: FDA-Public Use
  Company Number: PHHY2011BR00764

PATIENT
  Sex: Male

DRUGS (3)
  1. MAREVAN [Concomitant]
     Indication: ANEURYSM
  2. MAREVAN [Concomitant]
     Indication: THROMBOSIS
     Dosage: TWO TABLET DAILY
     Route: 048
  3. DIOVAN HCT [Suspect]
     Indication: BLOOD PRESSURE
     Dosage: ONE TABLET DAILY
     Route: 048

REACTIONS (5)
  - INFECTION [None]
  - BACK PAIN [None]
  - INTESTINAL HAEMORRHAGE [None]
  - CONDITION AGGRAVATED [None]
  - GASTROINTESTINAL NECROSIS [None]
